FAERS Safety Report 6497466-2 (Version None)
Quarter: 2009Q4

REPORT INFORMATION
  Report Type: 
  Country: None (occurrence: None)
  Receive Date: 20091215
  Receipt Date: 20091207
  Transmission Date: 20100525
  Serious: Yes (Hospitalization)
  Sender: FDA-Public Use
  Company Number: JP-ASTRAZENECA-2009SE29328

PATIENT
  Age: 94 Year
  Sex: Male

DRUGS (4)
  1. CASODEX [Suspect]
     Indication: PROSTATE CANCER
     Route: 048
     Dates: start: 20081101, end: 20081201
  2. CASODEX [Suspect]
     Route: 048
     Dates: start: 20090201, end: 20090301
  3. LEUPLIN [Concomitant]
     Indication: PROSTATE CANCER
     Route: 058
     Dates: start: 20081101, end: 20090401
  4. URSO 250 [Concomitant]
     Route: 048

REACTIONS (1)
  - NO ADVERSE EVENT [None]
